FAERS Safety Report 11630262 (Version 2)
Quarter: 2016Q1

REPORT INFORMATION
  Report Type: Spontaneous
  Country: FR (occurrence: FR)
  Receive Date: 20151014
  Receipt Date: 20160105
  Transmission Date: 20160525
  Serious: Yes (Life-Threatening, Hospitalization)
  Sender: FDA-Public Use
  Company Number: FR-JNJFOC-20151002800

PATIENT
  Age: 70 Year
  Sex: Male
  Weight: 62 kg

DRUGS (3)
  1. SIFROL [Concomitant]
     Active Substance: PRAMIPEXOLE
     Indication: PARKINSON^S DISEASE
     Route: 048
  2. SINEMET [Concomitant]
     Active Substance: CARBIDOPA\LEVODOPA
     Indication: PARKINSON^S DISEASE
     Dosage: LP
     Route: 048
  3. IMBRUVICA [Suspect]
     Active Substance: IBRUTINIB
     Indication: CHRONIC LYMPHOCYTIC LEUKAEMIA
     Route: 048
     Dates: start: 20150629, end: 20150726

REACTIONS (4)
  - Coma [Unknown]
  - Diarrhoea [Unknown]
  - Osmotic demyelination syndrome [Unknown]
  - Encephalopathy [Recovered/Resolved with Sequelae]

NARRATIVE: CASE EVENT DATE: 20150727
